FAERS Safety Report 16119491 (Version 1)
Quarter: 2019Q1

REPORT INFORMATION
  Report Type: Spontaneous
  Country: US (occurrence: US)
  Receive Date: 20190326
  Receipt Date: 20190326
  Transmission Date: 20190418
  Serious: No
  Sender: FDA-Public Use
  Company Number: US-TEVA-2019-US-1020439

PATIENT
  Sex: Female
  Weight: 84.9 kg

DRUGS (1)
  1. LOSARTAN AND HYDROCHLOROTHIAZIDE [Suspect]
     Active Substance: HYDROCHLOROTHIAZIDE\LOSARTAN POTASSIUM
     Dosage: LOSARTAN-100, HCTZ-25
     Route: 065

REACTIONS (6)
  - Fall [Unknown]
  - Blood pressure decreased [Unknown]
  - Joint injury [Unknown]
  - Wrong product administered [Unknown]
  - Product prescribing error [Unknown]
  - Limb injury [Unknown]
